FAERS Safety Report 24163865 (Version 1)
Quarter: 2024Q3

REPORT INFORMATION
  Report Type: Report from Study
  Country: CA (occurrence: CA)
  Receive Date: 20240801
  Receipt Date: 20240801
  Transmission Date: 20241016
  Serious: Yes (Other)
  Sender: AMARIN
  Company Number: CA-Amarin Pharma  Inc-2024AMR000377

PATIENT
  Age: 74 Year
  Sex: Female

DRUGS (1)
  1. VASCEPA [Suspect]
     Active Substance: ICOSAPENT ETHYL
     Indication: Cardiovascular event prophylaxis
     Dosage: 2 GRAM BID
     Dates: start: 20230704

REACTIONS (3)
  - Back pain [Not Recovered/Not Resolved]
  - Medical procedure [Unknown]
  - Procedural failure [Unknown]
